FAERS Safety Report 6176968-2 (Version None)
Quarter: 2009Q2

REPORT INFORMATION
  Report Type: 
  Country: None (occurrence: None)
  Receive Date: 20090501
  Receipt Date: 20090129
  Transmission Date: 20091009
  Serious: Yes (Hospitalization)
  Sender: FDA-Public Use
  Company Number: US-ALEXION-A200800391

PATIENT
  Sex: Female

DRUGS (6)
  1. SOLIRIS [Suspect]
     Indication: PAROXYSMAL NOCTURNAL HAEMOGLOBINURIA
     Dosage: 600 MG, UNK
     Route: 042
     Dates: start: 20081023, end: 20080101
  2. SOLIRIS [Suspect]
     Dosage: 900 MG, Q2W
     Route: 042
     Dates: start: 20081120
  3. PREDNISONE [Concomitant]
     Dosage: 5 MG, QD
     Route: 048
  4. FOLIC ACID [Concomitant]
     Dosage: UNK
     Route: 048
  5. TYLENOL (CAPLET) [Concomitant]
     Dosage: UNK
     Route: 048
  6. ANTIBIOTICS [Concomitant]

REACTIONS (7)
  - ANAEMIA [None]
  - DYSPNOEA [None]
  - GOUT [None]
  - NEUTROPENIA [None]
  - SEPSIS [None]
  - SLUGGISHNESS [None]
  - VULVOVAGINAL MYCOTIC INFECTION [None]
